FAERS Safety Report 5705731-9 (Version None)
Quarter: 2008Q2

REPORT INFORMATION
  Report Type: 
  Country: None (occurrence: None)
  Receive Date: 20080415
  Receipt Date: 20080404
  Transmission Date: 20081010
  Serious: Yes (Hospitalization)
  Sender: FDA-Public Use
  Company Number: B0515534A

PATIENT
  Age: 62 Year
  Sex: Male

DRUGS (1)
  1. AUGMENTIN '125' [Suspect]
     Indication: DRUG USE FOR UNKNOWN INDICATION
     Route: 048
     Dates: start: 20070901, end: 20070901

REACTIONS (7)
  - CONJUNCTIVAL HYPERAEMIA [None]
  - DERMATITIS BULLOUS [None]
  - ERYTHEMA MULTIFORME [None]
  - ORAL DISORDER [None]
  - PURPURA [None]
  - SKIN LESION [None]
  - TOXIC SKIN ERUPTION [None]
